FAERS Safety Report 4390657-6 (Version None)
Quarter: 2004Q3

REPORT INFORMATION
  Report Type: 
  Country: None (occurrence: None)
  Receive Date: 20040706
  Receipt Date: 20040629
  Transmission Date: 20050211
  Serious: Yes (Life-Threatening, Hospitalization)
  Sender: FDA-Public Use
  Company Number: GB-MERCK-0407USA00097

PATIENT
  Age: 67 Year
  Sex: Female

DRUGS (2)
  1. ASPIRIN [Suspect]
     Indication: VENTRICULAR HYPERTROPHY
     Route: 048
     Dates: start: 20030101, end: 20040619
  2. PRINIVIL [Suspect]
     Indication: VENTRICULAR HYPERTROPHY
     Route: 048
     Dates: start: 20010101

REACTIONS (4)
  - ABDOMINAL PAIN UPPER [None]
  - DUODENAL ULCER PERFORATION [None]
  - HAEMATEMESIS [None]
  - PERITONITIS [None]
